FAERS Safety Report 5310500-8 (Version None)
Quarter: 2007Q2

REPORT INFORMATION
  Report Type: 
  Country: None (occurrence: None)
  Receive Date: 20070427
  Receipt Date: 20070418
  Transmission Date: 20071010
  Serious: Yes (Death, Other)
  Sender: FDA-Public Use
  Company Number: US-PFIZER INC-2007031590

PATIENT
  Age: 12 Year

DRUGS (4)
  1. ZOLOFT [Suspect]
     Indication: ANXIETY
     Dosage: TEXT:UNKNOWN
  2. VERSED [Suspect]
     Dosage: TEXT:UNKNOWN
  3. CHARCOAL, ACTIVATED [Suspect]
     Dosage: TEXT:UNKNOWN
  4. ATIVAN [Suspect]
     Dosage: TEXT:UNKNOWN

REACTIONS (8)
  - AGITATION [None]
  - AKATHISIA [None]
  - ANXIETY [None]
  - COMPLETED SUICIDE [None]
  - CONFUSIONAL STATE [None]
  - DRUG ADMINISTRATION ERROR [None]
  - HAEMODYNAMIC INSTABILITY [None]
  - HALLUCINATION [None]
